FAERS Safety Report 6855188-X (Version None)
Quarter: 2010Q3

REPORT INFORMATION
  Report Type: 
  Country: None (occurrence: None)
  Receive Date: 20100717
  Receipt Date: 20081125
  Transmission Date: 20110219
  Serious: Yes (Hospitalization)
  Sender: FDA-Public Use
  Company Number: US-PFIZER INC-2007108332

PATIENT
  Age: 42 Year
  Sex: Female
  Weight: 78.005 kg

DRUGS (4)
  1. CHANTIX [Suspect]
     Indication: SMOKING CESSATION THERAPY
     Dosage: 1 MG, 2X/DAY
     Route: 048
  2. VENLAFAXINE HYDROCHLORIDE [Suspect]
     Indication: MIGRAINE
     Dosage: 37.5 MG, 1X/DAY
     Route: 048
  3. VENLAFAXINE HYDROCHLORIDE [Suspect]
     Indication: DEPRESSION
  4. AUGMENTIN '125' [Concomitant]
     Dosage: UNK

REACTIONS (1)
  - PANCREATITIS [None]
